FAERS Safety Report 4496629-5 (Version None)
Quarter: 2004Q4

REPORT INFORMATION
  Report Type: 
  Country: None (occurrence: None)
  Receive Date: 20040923
  Receipt Date: 20040623
  Transmission Date: 20050328
  Serious: No
  Sender: FDA-Public Use
  Company Number: WAES 0406USA02350

PATIENT
  Sex: Male

DRUGS (1)
  1. INVANZ [Suspect]
     Indication: APPENDICITIS PERFORATED
     Dosage: 1GM/1X
     Dates: start: 20040523, end: 20040523

REACTIONS (2)
  - TACHYCARDIA [None]
  - TREMOR [None]
